FAERS Safety Report 9901313 (Version 4)
Quarter: 2015Q1

REPORT INFORMATION
  Report Type: Spontaneous
  Country: US (occurrence: US)
  Receive Date: 20140217
  Receipt Date: 20150203
  Transmission Date: 20150721
  Serious: Yes (Hospitalization, Other)
  Sender: FDA-Public Use
  Company Number: US-BAYER-2014-024517

PATIENT
  Age: 24 Year
  Sex: Female
  Weight: 52.61 kg

DRUGS (2)
  1. MIRENA [Suspect]
     Active Substance: LEVONORGESTREL
     Indication: CONTRACEPTION
     Dosage: 20 MCG/24HR, CONT
     Route: 015
     Dates: start: 20120319, end: 20130415
  2. ATIVAN [Concomitant]
     Active Substance: LORAZEPAM

REACTIONS (10)
  - Medical device discomfort [None]
  - Medical device pain [None]
  - Device failure [None]
  - Device breakage [None]
  - Scar [None]
  - Uterine perforation [None]
  - Device dislocation [None]
  - Procedural pain [None]
  - Injury [None]
  - Pain [None]

NARRATIVE: CASE EVENT DATE: 20130415
